FAERS Safety Report 4729891-1 (Version None)
Quarter: 2005Q3

REPORT INFORMATION
  Report Type: 
  Country: None (occurrence: None)
  Receive Date: 20050728
  Receipt Date: 20050721
  Transmission Date: 20060218
  Serious: Yes (Hospitalization)
  Sender: FDA-Public Use
  Company Number: 106406ISR

PATIENT
  Age: 19 Year
  Sex: Male

DRUGS (2)
  1. GLATIRAMER ACETATE [Suspect]
     Indication: MULTIPLE SCLEROSIS
     Dosage: 20 MILLIGRAM, SUBCUTANEOUS
     Route: 058
     Dates: start: 20040504
  2. BETASERON [Suspect]
     Indication: MULTIPLE SCLEROSIS
     Dosage: 250 MICROGRAM/500 MICROGRAM SUBCUTANEOUS
     Route: 058

REACTIONS (4)
  - ANOREXIA [None]
  - ASTHENIA [None]
  - EPILEPSY [None]
  - PYREXIA [None]
